FAERS Safety Report 6865509-X (Version None)
Quarter: 2010Q3

REPORT INFORMATION
  Report Type: 
  Country: None (occurrence: None)
  Receive Date: 20100721
  Receipt Date: 20100715
  Transmission Date: 20110219
  Serious: Yes (Death)
  Sender: FDA-Public Use
  Company Number: US-AMGEN-QUU423097

PATIENT
  Sex: Male
  Weight: 78.1 kg

DRUGS (4)
  1. NPLATE [Suspect]
     Indication: IDIOPATHIC THROMBOCYTOPENIC PURPURA
     Route: 058
     Dates: start: 20081007, end: 20091014
  2. DANAZOL [Concomitant]
     Dates: start: 19970101
  3. CORTICOSTEROIDS [Concomitant]
  4. RITUXIMAB [Concomitant]
     Dates: start: 20090519, end: 20090610

REACTIONS (1)
  - CHRONIC OBSTRUCTIVE PULMONARY DISEASE [None]
